FAERS Safety Report 25439227 (Version 4)
Quarter: 2025Q4

REPORT INFORMATION
  Report Type: Spontaneous
  Country: US (occurrence: US)
  Receive Date: 20250616
  Receipt Date: 20251225
  Transmission Date: 20260118
  Serious: Yes (Other)
  Sender: SANOFI AVENTIS
  Company Number: US-SA-2025SA169190

PATIENT
  Age: 70 Year
  Sex: Female

DRUGS (2)
  1. DUPIXENT [Suspect]
     Active Substance: DUPILUMAB
     Indication: Asthma
     Dosage: 200 MG, QOW
     Route: 058
     Dates: start: 20241115
  2. FLECAINIDE [Concomitant]
     Active Substance: FLECAINIDE

REACTIONS (9)
  - Neuropathy peripheral [Recovered/Resolved]
  - Pain in extremity [Unknown]
  - Gait disturbance [Unknown]
  - Cardiac disorder [Unknown]
  - Fatigue [Unknown]
  - Productive cough [Unknown]
  - Product dose omission issue [Unknown]
  - Fall [Unknown]
  - Asthma [Unknown]

NARRATIVE: CASE EVENT DATE: 20250501
